FAERS Safety Report 4922505-7 (Version None)
Quarter: 2006Q1

REPORT INFORMATION
  Report Type: 
  Country: None (occurrence: None)
  Receive Date: 20060224
  Receipt Date: 20051019
  Transmission Date: 20060701
  Serious: Yes (Other)
  Sender: FDA-Public Use
  Company Number: BR-ROCHE-422288

PATIENT
  Age: 33 Year
  Sex: Female
  Weight: 52 kg

DRUGS (2)
  1. ROACUTAN [Suspect]
     Indication: ACNE
     Route: 048
     Dates: start: 20050715, end: 20051018
  2. SELENE [Concomitant]
     Indication: CONTRACEPTION
     Dates: start: 20050615, end: 20051018

REACTIONS (3)
  - DRUG EXPOSURE DURING PREGNANCY [None]
  - NO ADVERSE EFFECT [None]
  - PREGNANCY [None]
